FAERS Safety Report 21285158 (Version 1)
Quarter: 2022Q3

REPORT INFORMATION
  Report Type: Spontaneous
  Country: FR (occurrence: FR)
  Receive Date: 20220902
  Receipt Date: 20220902
  Transmission Date: 20221026
  Serious: Yes (Hospitalization)
  Sender: FDA-Public Use
  Company Number: None

PATIENT
  Age: 55 Year
  Sex: Female
  Weight: 94 kg

DRUGS (2)
  1. LETROZOLE [Suspect]
     Active Substance: LETROZOLE
     Indication: Breast cancer metastatic
     Dosage: FREQUENCY TIME : 1 DAY, DURATION: 156 DAYS, UNIT DOSE: 2.5 MG
     Dates: start: 20220112, end: 20220616
  2. KISQALI [Suspect]
     Active Substance: RIBOCICLIB
     Indication: Breast cancer metastatic
     Dosage: 3 TIMES 200MG/D 3 WEEKS OUT OF 4, FORM STRENGTH : 200 MG, DURATION: 109 DAYS
     Dates: start: 20220117, end: 20220506

REACTIONS (1)
  - Hepatitis cholestatic [Recovering/Resolving]

NARRATIVE: CASE EVENT DATE: 20220429
